FAERS Safety Report 25169389 (Version 1)
Quarter: 2025Q2

REPORT INFORMATION
  Report Type: Spontaneous
  Country: US (occurrence: US)
  Receive Date: 20250407
  Receipt Date: 20250407
  Transmission Date: 20250716
  Serious: No
  Sender: MERCK SHARP AND DOHME
  Company Number: US-PFIZER INC-202500027075

PATIENT
  Age: 69 Year
  Sex: Female

DRUGS (1)
  1. TUKYSA [Suspect]
     Active Substance: TUCATINIB
     Dosage: TWO 150MG TABLETS, TWICE DAILY
     Dates: start: 20220620

REACTIONS (1)
  - Off label use [Unknown]

NARRATIVE: CASE EVENT DATE: 20220620
